FAERS Safety Report 19367629 (Version 1)
Quarter: 2021Q2

REPORT INFORMATION
  Report Type: Report from Study
  Country: CH (occurrence: CH)
  Receive Date: 20210603
  Receipt Date: 20210603
  Transmission Date: 20210717
  Serious: Yes (Hospitalization)
  Sender: FDA-Public Use
  Company Number: CH-PFIZER INC-2021521604

PATIENT
  Age: 57 Year
  Sex: Male
  Weight: 77 kg

DRUGS (12)
  1. SUCRALAN [Concomitant]
     Dosage: 1 G, 3X/DAY (1?1?1?0)
  2. KCL?RETARD [Concomitant]
     Active Substance: POTASSIUM CHLORIDE
     Dosage: 10 MMOL/L, 4X/DAY (2?0?2?0)
     Dates: end: 20210308
  3. SOLIAN [Concomitant]
     Active Substance: AMISULPRIDE
     Dosage: 100 MG, 1X/DAY (1?0?0?0), STOPPED ON 08MAR2021 FOR SUSPECTED PHEOCHROMOCYTOMA WITH EVIDENCE OF A FAT
  4. QUILONORM [LITHIUM CARBONATE] [Concomitant]
     Active Substance: LITHIUM CARBONATE
     Dosage: 12.2 MMOL/L, 2X/DAY (1?0?1?0),  STOPPED DUE TO SUSPECTED LITHIUM INTOXICATION
     Dates: end: 20210308
  5. VITARUBIN [CYANOCOBALAMIN] [Concomitant]
     Dosage: 1000 UG/ML, MONTHLY, SUBSEQUENTLY EVERY 3 MONTHS
  6. METHOTREXATE SODIUM. [Suspect]
     Active Substance: METHOTREXATE SODIUM
     Indication: PSORIASIS
     Dosage: 25 MG/ML, WEEKLY (EVERY SUNDAY)
     Dates: start: 20190606, end: 201908
  7. TALTZ [Suspect]
     Active Substance: IXEKIZUMAB
     Indication: PSORIATIC ARTHROPATHY
  8. MAGNESIOCARD ORANGE [Concomitant]
     Dosage: 10 MMOL/L, 1X/DAY (1?0?0?0)
  9. ACIDUM FOLICUM STREULI [Concomitant]
     Active Substance: FOLIC ACID
     Dosage: 5 MG, DAILY (1?0?0?0), DAILY FOR THREE MONTHS, FOLLOWED BY 48H EACH AFTER METHOTREXATE
  10. METHOTREXATE SODIUM. [Suspect]
     Active Substance: METHOTREXATE SODIUM
     Indication: PSORIATIC ARTHROPATHY
     Dosage: 25 MG/ML, WEEKLY (EVERY SUNDAY)
     Dates: start: 201909, end: 202103
  11. TALTZ [Suspect]
     Active Substance: IXEKIZUMAB
     Indication: PSORIASIS
     Dosage: 80 MG, MONTHLY (EVERY 4 WEEKS)
     Dates: start: 20170515, end: 202103
  12. CO?AMOXI [Concomitant]
     Active Substance: AMOXICILLIN\CLAVULANATE POTASSIUM
     Dosage: 1 DF, 3X/DAY (1?1?0?1)
     Dates: end: 20210312

REACTIONS (2)
  - Dehydration [Recovered/Resolved]
  - Disturbance in attention [Recovered/Resolved]

NARRATIVE: CASE EVENT DATE: 20210308
